FAERS Safety Report 14870705 (Version 1)
Quarter: 2018Q2

REPORT INFORMATION
  Report Type: Spontaneous
  Country: US (occurrence: US)
  Receive Date: 20180423
  Receipt Date: 20180423
  Transmission Date: 20180711
  Serious: Yes (Life-Threatening, Hospitalization, Disabling, Other)
  Sender: FDA-Public Use
  Company Number: None

PATIENT
  Age: 55 Year
  Sex: Male
  Weight: 104.33 kg

DRUGS (17)
  1. CLOPIDOGREL 75MG TAB AUR [Suspect]
     Active Substance: CLOPIDOGREL BISULFATE
     Indication: THROMBOSIS
     Dosage: ?          QUANTITY:30 DF DOSAGE FORM;?
     Route: 048
     Dates: start: 20180306, end: 20180326
  2. CARISOPRODOL. [Concomitant]
     Active Substance: CARISOPRODOL
  3. TRAMADOL HCL [Concomitant]
     Active Substance: TRAMADOL HYDROCHLORIDE
  4. METOPROLOL. [Concomitant]
     Active Substance: METOPROLOL
  5. GLUCOSAMINE [Concomitant]
     Active Substance: GLUCOSAMINE
  6. CLOPIDOGREL 75MG TAB AUR [Suspect]
     Active Substance: CLOPIDOGREL BISULFATE
     Indication: STENT PLACEMENT
     Dosage: ?          QUANTITY:30 DF DOSAGE FORM;?
     Route: 048
     Dates: start: 20180306, end: 20180326
  7. PRILOSEC [Concomitant]
     Active Substance: OMEPRAZOLE MAGNESIUM
  8. LISINOPRIL. [Concomitant]
     Active Substance: LISINOPRIL
  9. ATORVASTATIN [Concomitant]
     Active Substance: ATORVASTATIN
  10. MULTI VITAMIN 50+ [Concomitant]
  11. ASPIRIN. [Concomitant]
     Active Substance: ASPIRIN
  12. VITAMIN C [Concomitant]
     Active Substance: ASCORBIC ACID
  13. CALCIUM, MAGNESIUM + ZINC [Concomitant]
  14. CLOPIDOGREL 75MG TAB AUR [Suspect]
     Active Substance: CLOPIDOGREL BISULFATE
     Indication: ANTICOAGULANT THERAPY
     Dosage: ?          QUANTITY:30 DF DOSAGE FORM;?
     Route: 048
     Dates: start: 20180306, end: 20180326
  15. ALEVE [Concomitant]
     Active Substance: NAPROXEN SODIUM
  16. MSM CRYSTALS [Concomitant]
  17. PROSTATE ESSENTIAL 180 VEGGIE CAPSULE-SWANSON [Concomitant]

REACTIONS (3)
  - Condition aggravated [None]
  - Drug reaction with eosinophilia and systemic symptoms [None]
  - Hypertension [None]

NARRATIVE: CASE EVENT DATE: 20180324
